FAERS Safety Report 19113110 (Version 2)
Quarter: 2021Q2

REPORT INFORMATION
  Report Type: Spontaneous
  Country: SI (occurrence: SI)
  Receive Date: 20210408
  Receipt Date: 20210413
  Transmission Date: 20210717
  Serious: Yes (Death, Hospitalization)
  Sender: FDA-Public Use
  Company Number: SI-ABBVIE-21K-261-3852437-00

PATIENT
  Age: 65 Year
  Sex: Male

DRUGS (2)
  1. DUODOPA [Suspect]
     Active Substance: CARBIDOPA\LEVODOPA
  2. DUODOPA [Suspect]
     Active Substance: CARBIDOPA\LEVODOPA
     Indication: PARKINSON^S DISEASE
     Route: 050
     Dates: start: 201712

REACTIONS (7)
  - Cardiac arrest [Fatal]
  - COVID-19 [Unknown]
  - Dehydration [Unknown]
  - Liver disorder [Unknown]
  - Anaemia [Unknown]
  - Acute kidney injury [Unknown]
  - Pneumonia [Unknown]

NARRATIVE: CASE EVENT DATE: 20210212
